FAERS Safety Report 12418014 (Version 1)
Quarter: 2016Q2

REPORT INFORMATION
  Report Type: Spontaneous
  Country: NO (occurrence: NO)
  Receive Date: 20160531
  Receipt Date: 20160531
  Transmission Date: 20160815
  Serious: Yes (Hospitalization, Disabling, Other)
  Sender: FDA-Public Use
  Company Number: NO-UCBSA-2016019315

PATIENT
  Age: 53 Year
  Sex: Female

DRUGS (3)
  1. ORUDIS [Concomitant]
     Active Substance: KETOPROFEN
     Indication: PSORIATIC ARTHROPATHY
     Dosage: 200 MG, ONCE DAILY (QD)
     Route: 048
  2. CIMZIA [Suspect]
     Active Substance: CERTOLIZUMAB PEGOL
     Indication: PSORIATIC ARTHROPATHY
     Dosage: 400 MG, UNK
     Route: 058
     Dates: start: 20160406, end: 20160406
  3. ETANERCEPT [Concomitant]
     Active Substance: ETANERCEPT
     Indication: PSORIATIC ARTHROPATHY
     Dosage: UNK
     Dates: end: 20160330

REACTIONS (1)
  - Anaphylactic reaction [Recovered/Resolved]

NARRATIVE: CASE EVENT DATE: 20160406
